FAERS Safety Report 13768140 (Version 6)
Quarter: 2017Q4

REPORT INFORMATION
  Report Type: Spontaneous
  Country: JP (occurrence: JP)
  Receive Date: 20170719
  Receipt Date: 20171016
  Transmission Date: 20180320
  Serious: Yes (Hospitalization, Other)
  Sender: FDA-Public Use
  Company Number: PHJP2017JP022704

PATIENT
  Sex: Male
  Weight: 2.35 kg

DRUGS (22)
  1. PREDNISOLONE. [Suspect]
     Active Substance: PREDNISOLONE
     Indication: FOETAL EXPOSURE DURING PREGNANCY
     Dosage: DOSE FOR MOTHER: 30MG/DAY
     Route: 064
     Dates: start: 20160324
  2. PREDNISOLONE. [Suspect]
     Active Substance: PREDNISOLONE
     Dosage: DOSE FOR MOTHER: 20MG/DAY
     Route: 064
  3. NEORAL [Suspect]
     Active Substance: CYCLOSPORINE
     Dosage: DOSE FOR MOTHER: 170 MG/DAY
     Route: 063
  4. PREDNISOLONE. [Suspect]
     Active Substance: PREDNISOLONE
     Dosage: DOSE FOR MOTHER: 40MG/DAY
     Route: 064
  5. PREDNISOLONE. [Suspect]
     Active Substance: PREDNISOLONE
     Dosage: DOSE FOR MOTHER: 20MG/DAY
     Route: 063
  6. NEORAL [Suspect]
     Active Substance: CYCLOSPORINE
     Dosage: DOSE FOR MOTHER: 200 MG/DAY
     Route: 064
  7. PREDNISOLONE. [Suspect]
     Active Substance: PREDNISOLONE
     Dosage: DOSE FOR MOTHER: 20MG/DAY
     Route: 064
  8. PREDNISOLONE. [Suspect]
     Active Substance: PREDNISOLONE
     Dosage: DOSE FOR MOTHER: 30MG/DAY
     Route: 064
  9. PREDNISOLONE. [Suspect]
     Active Substance: PREDNISOLONE
     Dosage: DOSE FOR MOTHER: 30MG/DAY
     Route: 063
  10. PREDNISOLONE. [Suspect]
     Active Substance: PREDNISOLONE
     Dosage: DOSE FOR MOTHER: 40MG/DAY
     Route: 064
  11. PREDNISOLONE. [Suspect]
     Active Substance: PREDNISOLONE
     Dosage: DOSE FOR MOTHER: 20MG/DAY
     Route: 064
  12. NEORAL [Suspect]
     Active Substance: CYCLOSPORINE
     Dosage: DOSE FOR MOTHER: 130 MG/DAY
     Route: 064
  13. NEORAL [Suspect]
     Active Substance: CYCLOSPORINE
     Dosage: DOSE FOR MOTHER: 300 MG/DAY
     Route: 064
     Dates: start: 20160324
  14. NEORAL [Suspect]
     Active Substance: CYCLOSPORINE
     Dosage: DOSE FOR MOTHER: 170 MG/DAY
     Route: 064
  15. NEORAL [Suspect]
     Active Substance: CYCLOSPORINE
     Indication: FOETAL EXPOSURE DURING PREGNANCY
     Dosage: DOSE FOR MOTHER: 200 MG/DAY
     Route: 064
  16. NEORAL [Suspect]
     Active Substance: CYCLOSPORINE
     Dosage: DOSE FOR MOTHER: 350 MG/DAY
     Route: 063
  17. PREDNISOLONE. [Suspect]
     Active Substance: PREDNISOLONE
     Dosage: DOSE FOR MOTHER: 30MG/DAY
     Route: 064
  18. PREDNISOLONE. [Suspect]
     Active Substance: PREDNISOLONE
     Dosage: DOSE FOR MOTHER: 12.5MG/DAY
     Route: 064
  19. PREDNISOLONE. [Suspect]
     Active Substance: PREDNISOLONE
     Dosage: DOSE FOR MOTHER: 10MG/DAY
     Route: 064
  20. PREDNISOLONE. [Suspect]
     Active Substance: PREDNISOLONE
     Dosage: DOSE FOR MOTHER: 20MG/DAY
     Route: 064
  21. PREDNISOLONE. [Suspect]
     Active Substance: PREDNISOLONE
     Dosage: DOSE FOR MOTHER: 15MG/DAY
     Route: 064
  22. MAGNESIUM OXIDE. [Suspect]
     Active Substance: MAGNESIUM OXIDE
     Indication: FOETAL EXPOSURE DURING PREGNANCY
     Dosage: UNK
     Route: 064

REACTIONS (4)
  - Low birth weight baby [Recovered/Resolved]
  - Foetal exposure during pregnancy [Unknown]
  - Premature baby [Recovered/Resolved]
  - Exposure during breast feeding [Unknown]

NARRATIVE: CASE EVENT DATE: 20160914
